FAERS Safety Report 8188098-9 (Version None)
Quarter: 2012Q1

REPORT INFORMATION
  Report Type: 
  Country: None (occurrence: None)
  Receive Date: 20120306
  Receipt Date: 20120221
  Transmission Date: 20120608
  Serious: Yes (Hospitalization, Congenital Anomaly)
  Sender: FDA-Public Use
  Company Number: DE-WATSON-2012-02951

PATIENT
  Sex: Female
  Weight: 2.85 kg

DRUGS (6)
  1. VENLAFAXINE HYDROCHLORIDE [Suspect]
     Indication: ANXIETY DISORDER
     Dosage: 150 MG, DAILY
     Route: 064
     Dates: end: 20100701
  2. TRIMIPRAMINE MALEATE [Suspect]
     Indication: DEPRESSION
     Dosage: 400 MG, DAILY
     Route: 065
     Dates: end: 20100901
  3. LORAZEPAM [Suspect]
     Indication: BORDERLINE PERSONALITY DISORDER
     Dosage: 8 MG/D IF REQUIRED, BETWEEN 2.5 MG/D AND 8 MG/D
     Route: 064
     Dates: end: 20100601
  4. FOLIC ACID [Concomitant]
     Indication: PROPHYLAXIS OF NEURAL TUBE DEFECT
     Route: 064
  5. LAMOTRIGINE [Suspect]
     Indication: DEPRESSION
     Dosage: 200 MG, DAILY
     Route: 064
  6. RISPERDAL [Suspect]
     Indication: POST-TRAUMATIC STRESS DISORDER
     Dosage: 6 MG, DAILY
     Route: 064
     Dates: end: 20100701

REACTIONS (5)
  - PATENT DUCTUS ARTERIOSUS [None]
  - PARACHUTE MITRAL VALVE [None]
  - COARCTATION OF THE AORTA [None]
  - ATRIAL SEPTAL DEFECT [None]
  - VENTRICULAR SEPTAL DEFECT [None]
